FAERS Safety Report 20629920 (Version 1)
Quarter: 2022Q1

REPORT INFORMATION
  Report Type: Spontaneous
  Country: RU (occurrence: RU)
  Receive Date: 20220324
  Receipt Date: 20220324
  Transmission Date: 20220423
  Serious: Yes (Hospitalization, Other)
  Sender: FDA-Public Use
  Company Number: RU-AMGEN-RUSSP2022048682

PATIENT
  Age: 30 Year
  Sex: Female

DRUGS (2)
  1. PROLIA [Suspect]
     Active Substance: DENOSUMAB
     Indication: Hypercalcaemia
     Dosage: 60 MILLIGRAM
     Route: 058
  2. PROLIA [Suspect]
     Active Substance: DENOSUMAB
     Indication: Off label use

REACTIONS (2)
  - Hungry bone syndrome [Unknown]
  - Off label use [Unknown]
